FAERS Safety Report 4303679-8 (Version None)
Quarter: 2004Q1

REPORT INFORMATION
  Report Type: 
  Country: None (occurrence: None)
  Receive Date: 20040223
  Receipt Date: 20040210
  Transmission Date: 20041129
  Serious: Yes (Hospitalization)
  Sender: FDA-Public Use
  Company Number: 2003121068

PATIENT
  Age: 63 Year
  Weight: 68.9 kg

DRUGS (7)
  1. ZITHROMAX [Suspect]
     Indication: PNEUMONIA PRIMARY ATYPICAL
     Dosage: 500 MG (BID), ORAL
     Route: 048
     Dates: start: 20030706, end: 20030708
  2. DOXORUBICIN HCL [Suspect]
     Indication: UTERINE CANCER
  3. ENALAPRIL MALEATE [Concomitant]
  4. DIGOXIN [Concomitant]
  5. GLYCERYL TRINITRATE (GLYCERIL TRINITRATE) [Concomitant]
  6. FUROSEMIDE [Concomitant]
  7. FUROSEMIDE [Concomitant]

REACTIONS (12)
  - CARDIAC FAILURE CONGESTIVE [None]
  - CARDIOMYOPATHY [None]
  - DILATATION VENTRICULAR [None]
  - ELECTROCARDIOGRAM QT PROLONGED [None]
  - FACE OEDEMA [None]
  - HYPOKALAEMIA [None]
  - OXYGEN SATURATION DECREASED [None]
  - PNEUMONIA PRIMARY ATYPICAL [None]
  - VENTRICULAR EXTRASYSTOLES [None]
  - VENTRICULAR HYPOKINESIA [None]
  - VENTRICULAR TACHYCARDIA [None]
  - WEIGHT DECREASED [None]
